FAERS Safety Report 8480375-7 (Version None)
Quarter: 2012Q3

REPORT INFORMATION
  Report Type: 
  Country: None (occurrence: None)
  Receive Date: 20120702
  Receipt Date: 20120627
  Transmission Date: 20120928
  Serious: Yes (Hospitalization)
  Sender: FDA-Public Use
  Company Number: BR-ROCHE-1082550

PATIENT
  Sex: Female
  Weight: 58 kg

DRUGS (4)
  1. METHOTREXATE [Concomitant]
     Route: 065
  2. MABTHERA [Suspect]
     Indication: PRODUCT USED FOR UNKNOWN INDICATION
     Route: 065
     Dates: start: 20111108, end: 20111125
  3. DICLOFENAC SODIUM [Concomitant]
     Route: 065
  4. DEFLANIL [Concomitant]
     Route: 065

REACTIONS (1)
  - INTERVERTEBRAL DISC PROTRUSION [None]
